FAERS Safety Report 20971314 (Version 1)
Quarter: 2022Q2

REPORT INFORMATION
  Report Type: Spontaneous
  Country: US (occurrence: US)
  Receive Date: 20220616
  Receipt Date: 20220616
  Transmission Date: 20220720
  Serious: No
  Sender: FDA-Public Use
  Company Number: US-SA-SAC20220609000586

PATIENT
  Age: 43 Year
  Sex: Male

DRUGS (1)
  1. DUPIXENT [Suspect]
     Active Substance: DUPILUMAB
     Indication: Eczema
     Dosage: 300 MG, QOW
     Route: 058
     Dates: start: 202203

REACTIONS (7)
  - Genital rash [Recovered/Resolved]
  - Swelling [Recovered/Resolved]
  - Fear of injection [Unknown]
  - Myalgia [Recovered/Resolved]
  - Wound infection bacterial [Recovered/Resolved]
  - Blood pressure abnormal [Unknown]
  - Injection site pruritus [Recovered/Resolved]

NARRATIVE: CASE EVENT DATE: 20220101
